FAERS Safety Report 12802111 (Version 1)
Quarter: 2016Q4

REPORT INFORMATION
  Report Type: Spontaneous
  Country: US (occurrence: US)
  Receive Date: 20161003
  Receipt Date: 20161003
  Transmission Date: 20170207
  Serious: No
  Sender: FDA-Public Use
  Company Number: US-JAZZ-2016-US-012136

PATIENT
  Age: 58 Year
  Sex: Female

DRUGS (23)
  1. MAXALT [Concomitant]
     Active Substance: RIZATRIPTAN BENZOATE
  2. PRIMIDONE. [Concomitant]
     Active Substance: PRIMIDONE
  3. DOXYCYCLINE. [Concomitant]
     Active Substance: DOXYCYCLINE
  4. HYDROCORTISONE. [Concomitant]
     Active Substance: HYDROCORTISONE
  5. TOPAMAX [Concomitant]
     Active Substance: TOPIRAMATE
  6. FLUOXETINE HCL [Concomitant]
     Active Substance: FLUOXETINE HYDROCHLORIDE
  7. TAMIFLU [Concomitant]
     Active Substance: OSELTAMIVIR PHOSPHATE
  8. WELLBUTRIN [Concomitant]
     Active Substance: BUPROPION HYDROCHLORIDE
  9. PROLIA [Concomitant]
     Active Substance: DENOSUMAB
  10. DEXEDRINE [Concomitant]
     Active Substance: DEXTROAMPHETAMINE SULFATE
  11. VITAMIN D [Concomitant]
     Active Substance: CHOLECALCIFEROL
  12. CALTRATE [Concomitant]
     Active Substance: CALCIUM CARBONATE
  13. CYMBALTA [Concomitant]
     Active Substance: DULOXETINE HYDROCHLORIDE
  14. XYREM [Suspect]
     Active Substance: SODIUM OXYBATE
     Indication: NARCOLEPSY
     Dosage: 3 G, BID
     Route: 048
     Dates: start: 200209, end: 200301
  15. XYREM [Suspect]
     Active Substance: SODIUM OXYBATE
     Indication: CATAPLEXY
     Dosage: DOSE ADJUSTMENTS
     Route: 048
     Dates: start: 200301, end: 201601
  16. PROVIGIL [Concomitant]
     Active Substance: MODAFINIL
  17. FOSAMAX [Concomitant]
     Active Substance: ALENDRONATE SODIUM
  18. XYREM [Suspect]
     Active Substance: SODIUM OXYBATE
     Dosage: 3.25 G, BID
     Route: 048
     Dates: start: 201601
  19. ESTROGEN [Concomitant]
     Active Substance: ESTRONE\SUS SCROFA OVARY
  20. BYSTOLIC [Concomitant]
     Active Substance: NEBIVOLOL HYDROCHLORIDE
  21. KLONOPIN [Concomitant]
     Active Substance: CLONAZEPAM
  22. XARELTO [Concomitant]
     Active Substance: RIVAROXABAN
  23. VIIBRYD [Concomitant]
     Active Substance: VILAZODONE HYDROCHLORIDE

REACTIONS (5)
  - Migraine [Not Recovered/Not Resolved]
  - Fall [Recovered/Resolved]
  - Essential tremor [Not Recovered/Not Resolved]
  - Limb injury [Unknown]
  - Peroneal nerve palsy [Unknown]

NARRATIVE: CASE EVENT DATE: 201604
